FAERS Safety Report 14742517 (Version 1)
Quarter: 2018Q2

REPORT INFORMATION
  Report Type: Spontaneous
  Country: SE (occurrence: SE)
  Receive Date: 20180410
  Receipt Date: 20180410
  Transmission Date: 20180711
  Serious: Yes (Other)
  Sender: FDA-Public Use
  Company Number: SE-LPDUSPRD-20180521

PATIENT
  Age: 41 Year
  Sex: Female

DRUGS (1)
  1. FERINJECT [Suspect]
     Active Substance: FERRIC CARBOXYMALTOSE
     Dosage: UNKNOWN
     Route: 042
     Dates: start: 20170505, end: 20170505

REACTIONS (6)
  - Incorrect route of drug administration [Not Recovered/Not Resolved]
  - Infusion site paraesthesia [Recovering/Resolving]
  - Infusion site pain [Recovering/Resolving]
  - Infusion site discolouration [Recovering/Resolving]
  - Infusion site swelling [Recovering/Resolving]
  - Drug administration error [Recovering/Resolving]

NARRATIVE: CASE EVENT DATE: 20170505
